FAERS Safety Report 6879469-9 (Version None)
Quarter: 2010Q3

REPORT INFORMATION
  Report Type: 
  Country: None (occurrence: None)
  Receive Date: 20100728
  Receipt Date: 20100719
  Transmission Date: 20110219
  Serious: Yes (Hospitalization)
  Sender: FDA-Public Use
  Company Number: GXBR2010US01343

PATIENT
  Sex: Female

DRUGS (10)
  1. BUPROPION HCL TABLETS (NGX) [Suspect]
     Dosage: UNK MG, UNK
     Route: 048
  2. ADVAIR DISKUS 100/50 [Suspect]
     Indication: ASTHMA
     Dosage: 1 PUFF (500/50 MCG)  BID
  3. PROAIR HFA [Concomitant]
  4. KLOR-CON [Concomitant]
  5. SIMVASTATIN [Concomitant]
  6. GLIMEPIRIDE [Concomitant]
  7. AMLODIPINE BESYLATE [Concomitant]
  8. METOPROLOL TARTRATE [Concomitant]
  9. LISINOPRIL [Concomitant]
  10. FUROSEMIDE [Concomitant]

REACTIONS (3)
  - AMNESIA [None]
  - CEREBROVASCULAR ACCIDENT [None]
  - MONOPARESIS [None]
